FAERS Safety Report 12922468 (Version 1)
Quarter: 2016Q4

REPORT INFORMATION
  Report Type: Spontaneous
  Country: US (occurrence: US)
  Receive Date: 20161109
  Receipt Date: 20161109
  Transmission Date: 20170207
  Serious: Yes (Hospitalization, Other)
  Sender: FDA-Public Use
  Company Number: US-BRISTOL-MYERS SQUIBB COMPANY-BMS-2016-087484

PATIENT
  Sex: Female

DRUGS (1)
  1. OPDIVO [Suspect]
     Active Substance: NIVOLUMAB
     Indication: MALIGNANT MELANOMA
     Dosage: UNK UNK, Q2WK
     Route: 042
     Dates: start: 20151202

REACTIONS (12)
  - Diarrhoea [Recovered/Resolved]
  - Adverse event [Unknown]
  - Headache [Recovered/Resolved]
  - Atrial fibrillation [Recovering/Resolving]
  - Hospitalisation [Unknown]
  - Drug ineffective [Unknown]
  - Decreased appetite [Unknown]
  - Back pain [Unknown]
  - Constipation [Unknown]
  - Gingival pain [Recovering/Resolving]
  - Nausea [Unknown]
  - Asthenia [Recovering/Resolving]
